FAERS Safety Report 17671997 (Version 3)
Quarter: 2020Q4

REPORT INFORMATION
  Report Type: Report from Study
  Country: KR (occurrence: KR)
  Receive Date: 20200415
  Receipt Date: 20201209
  Transmission Date: 20210113
  Serious: Yes (Hospitalization)
  Sender: FDA-Public Use
  Company Number: KR-JNJFOC-20200414058

PATIENT
  Age: 83 Year
  Sex: Male
  Weight: 54 kg

DRUGS (13)
  1. COZAAR [Concomitant]
     Active Substance: LOSARTAN POTASSIUM
     Dosage: 25 MG
     Route: 048
     Dates: start: 20200114, end: 20200402
  2. RIVAROXABAN [Suspect]
     Active Substance: RIVAROXABAN
     Indication: ATRIAL FIBRILLATION
     Dosage: 15 MG, QD
     Route: 048
     Dates: start: 20200116, end: 20200402
  3. RIVAROXABAN [Suspect]
     Active Substance: RIVAROXABAN
     Indication: CEREBROVASCULAR ACCIDENT PROPHYLAXIS
     Route: 048
  4. DILATREND [Concomitant]
     Active Substance: CARVEDILOL
     Dosage: 6.25 MG
     Route: 048
     Dates: start: 20200114
  5. FURIX [CEFUROXIME] [Concomitant]
     Active Substance: CEFUROXIME
     Dosage: 20 MG
     Route: 048
     Dates: start: 20200109
  6. PROCADEX [Concomitant]
     Dosage: 50 MG
     Route: 048
     Dates: start: 20130514
  7. MIRABEGRON [Concomitant]
     Active Substance: MIRABEGRON
     Dosage: 50 MG
     Route: 048
     Dates: start: 20190328
  8. NOLTEC [Concomitant]
     Dosage: 10 MG
     Route: 048
     Dates: start: 20200319
  9. RIVAROXABAN [Suspect]
     Active Substance: RIVAROXABAN
     Indication: THROMBOSIS PROPHYLAXIS
     Route: 048
  10. HARNAL [Concomitant]
     Active Substance: TAMSULOSIN HYDROCHLORIDE
     Dosage: 0.4 MG
     Route: 048
     Dates: start: 20170621
  11. CORDARONE [Concomitant]
     Active Substance: AMIODARONE HYDROCHLORIDE
     Dosage: 100 MG
     Route: 048
     Dates: start: 20200116
  12. ALDACTONE [Concomitant]
     Active Substance: SPIRONOLACTONE
     Dosage: 12.5 MG
     Route: 048
     Dates: start: 20200115
  13. CALUTAMI [Concomitant]
     Dosage: 150 MG
     Route: 048
     Dates: start: 20200319

REACTIONS (1)
  - Large intestinal ulcer [Recovering/Resolving]

NARRATIVE: CASE EVENT DATE: 20200402
